FAERS Safety Report 9591338 (Version 1)
Quarter: 2013Q4

REPORT INFORMATION
  Report Type: Spontaneous
  Country: US (occurrence: US)
  Receive Date: 20131003
  Receipt Date: 20131003
  Transmission Date: 20140711
  Serious: No
  Sender: FDA-Public Use
  Company Number: US-AMGEN-USASP2012080894

PATIENT
  Age: 10 Year
  Sex: Female
  Weight: 32.65 kg

DRUGS (9)
  1. ENBREL [Suspect]
     Indication: JUVENILE IDIOPATHIC ARTHRITIS
     Dosage: 50 MG, WEEKLY
     Route: 058
  2. METHOTREXATE [Concomitant]
     Dosage: 2.5 MG, UNK
     Route: 048
  3. FOLIC ACID [Concomitant]
     Dosage: UNK
     Route: 048
  4. MULTIVITAMIN                       /07504101/ [Concomitant]
     Dosage: UNK
     Route: 048
  5. VITAMIN C                          /00008001/ [Concomitant]
     Dosage: 500 MG, TID
     Route: 048
  6. MELOXICAM [Concomitant]
     Dosage: 15 MG, UNK
     Route: 048
  7. HYDROXYCHLOROQUINE [Concomitant]
     Dosage: 200 MG, UNK
     Route: 048
  8. VITAMIN D                          /00107901/ [Concomitant]
     Dosage: 400 UNK, UNK
     Route: 048
  9. FISH OIL [Concomitant]
     Dosage: UNK
     Route: 048

REACTIONS (2)
  - Injection site rash [Unknown]
  - Rash [Unknown]
